FAERS Safety Report 8952668 (Version 4)
Quarter: 2013Q2

REPORT INFORMATION
  Report Type: Spontaneous
  Country: US (occurrence: US)
  Receive Date: 20121205
  Receipt Date: 20130613
  Transmission Date: 20140414
  Serious: Yes (Hospitalization, Disabling, Other)
  Sender: FDA-Public Use
  Company Number: US-009507513-1212USA001138

PATIENT
  Sex: Female
  Weight: 72.56 kg

DRUGS (6)
  1. FOSAMAX [Suspect]
     Indication: OSTEOPOROSIS
     Dosage: 10 MG, QD
     Route: 048
  2. FOSAMAX [Suspect]
     Dosage: 70 MG, QW
     Route: 048
     Dates: end: 20061108
  3. ACTONEL [Suspect]
     Indication: OSTEOPOROSIS
     Dosage: 150 MG, QM
     Route: 048
     Dates: start: 20061108, end: 20130227
  4. CORTICOSTEROIDS (UNSPECIFIED) [Concomitant]
     Dosage: UNK
     Route: 048
     Dates: start: 1965
  5. PROVENTIL [Concomitant]
     Indication: ASTHMA
     Dosage: 2 PUFFS, PRN
     Route: 055
     Dates: start: 1965
  6. ADVAIR [Concomitant]
     Indication: ASTHMA
     Dosage: 3 PUFFS BID
     Route: 055

REACTIONS (65)
  - Intramedullary rod insertion [Not Recovered/Not Resolved]
  - Spinal laminectomy [Unknown]
  - Open reduction of fracture [Unknown]
  - Removal of internal fixation [Unknown]
  - Fall [Not Recovered/Not Resolved]
  - Femur fracture [Not Recovered/Not Resolved]
  - Fall [Unknown]
  - Gait disturbance [Unknown]
  - Pain [Unknown]
  - Wrist fracture [Unknown]
  - Foot fracture [Unknown]
  - Foot fracture [Unknown]
  - Foot fracture [Unknown]
  - Vitamin D deficiency [Unknown]
  - Vitamin D deficiency [Unknown]
  - Road traffic accident [Unknown]
  - Temporomandibular joint syndrome [Unknown]
  - Post-traumatic neck syndrome [Unknown]
  - Fibromyalgia [Unknown]
  - Fracture [Unknown]
  - Nephrolithiasis [Unknown]
  - Hypertension [Unknown]
  - Arthritis [Unknown]
  - Road traffic accident [Unknown]
  - Intervertebral disc degeneration [Unknown]
  - Areflexia [Unknown]
  - Sleep apnoea syndrome [Unknown]
  - Retinal detachment [Unknown]
  - Retinopexy [Unknown]
  - Cataract operation [Unknown]
  - Irritable bowel syndrome [Unknown]
  - Cardiac murmur functional [Unknown]
  - Migraine [Unknown]
  - Surgery [Unknown]
  - Benign tumour excision [Unknown]
  - Wrist surgery [Unknown]
  - Cervix operation [Unknown]
  - Oesophagogastric fundoplasty [Unknown]
  - Hepatitis B [Unknown]
  - Fatigue [Unknown]
  - Lumbar spinal stenosis [Unknown]
  - Bursitis [Unknown]
  - Macular degeneration [Unknown]
  - Hypercholesterolaemia [Unknown]
  - Osteoarthritis [Unknown]
  - Cyst [Unknown]
  - Lipoma excision [Unknown]
  - Carpal tunnel decompression [Unknown]
  - Meniscus injury [Unknown]
  - Synovial cyst [Unknown]
  - Antinuclear antibody increased [Unknown]
  - Histone antibody positive [Unknown]
  - Fatigue [Unknown]
  - Joint crepitation [Unknown]
  - Drug intolerance [Unknown]
  - Muscular weakness [Unknown]
  - Osteopenia [Unknown]
  - Osteoarthritis [Unknown]
  - Pain in extremity [Unknown]
  - Gastrooesophageal reflux disease [Unknown]
  - Vertigo [Unknown]
  - Myalgia [Unknown]
  - Neck pain [Not Recovered/Not Resolved]
  - Back pain [Not Recovered/Not Resolved]
  - Arthralgia [Not Recovered/Not Resolved]
